FAERS Safety Report 7684893-0 (Version None)
Quarter: 2011Q3

REPORT INFORMATION
  Report Type: 
  Country: None (occurrence: None)
  Receive Date: 20110816
  Receipt Date: 20110802
  Transmission Date: 20111222
  Serious: Yes (Other)
  Sender: FDA-Public Use
  Company Number: US-UCBSA-036869

PATIENT
  Sex: Male
  Weight: 99.545 kg

DRUGS (5)
  1. CELEBREX [Concomitant]
     Dates: end: 20090801
  2. KEPPRA [Suspect]
     Indication: EPILEPSY
  3. KEPPRA XR [Suspect]
     Indication: CONVULSION
     Dosage: AT BED TIME
     Dates: start: 20050101
  4. CLONAZEPAM [Concomitant]
     Indication: INSOMNIA
     Dates: end: 20090801
  5. ZONISAMIDE [Concomitant]
     Indication: PARTIAL SEIZURES
     Dates: end: 20090801

REACTIONS (4)
  - ARTERIOSCLEROSIS CORONARY ARTERY [None]
  - CARDIAC ARREST [None]
  - SYNCOPE [None]
  - MYOCARDIAL INFARCTION [None]
